FAERS Safety Report 9495375 (Version 2)
Quarter: 2013Q3

REPORT INFORMATION
  Report Type: Spontaneous
  Country: JP (occurrence: JP)
  Receive Date: 20130903
  Receipt Date: 20130910
  Transmission Date: 20140515
  Serious: Yes (Hospitalization)
  Sender: FDA-Public Use
  Company Number: JP-GLAXOSMITHKLINE-B0919290A

PATIENT
  Age: 43 Year
  Sex: Male

DRUGS (5)
  1. LAMICTAL [Suspect]
     Indication: BIPOLAR DISORDER
     Route: 048
     Dates: start: 20130115
  2. LAMICTAL [Suspect]
     Indication: BIPOLAR DISORDER
     Dosage: 100MG TWICE PER DAY
     Route: 048
  3. SEROQUEL [Concomitant]
     Route: 048
  4. SILECE [Concomitant]
     Route: 065
  5. RESLIN [Concomitant]
     Route: 048

REACTIONS (5)
  - Tremor [Not Recovered/Not Resolved]
  - Mania [Recovering/Resolving]
  - Mania [Not Recovered/Not Resolved]
  - Aggression [Not Recovered/Not Resolved]
  - Tremor [Not Recovered/Not Resolved]
